FAERS Safety Report 16304822 (Version 3)
Quarter: 2021Q1

REPORT INFORMATION
  Report Type: Spontaneous
  Country: CZ (occurrence: CZ)
  Receive Date: 20190513
  Receipt Date: 20210208
  Transmission Date: 20210419
  Serious: Yes (Other)
  Sender: FDA-Public Use
  Company Number: CZ-SA-2019SA101021

PATIENT
  Age: 63 Year
  Sex: Male

DRUGS (9)
  1. RAMIPRIL ACTAVIS [Concomitant]
     Active Substance: RAMIPRIL
  2. ROSUVASTATIN. [Concomitant]
     Active Substance: ROSUVASTATIN
  3. OMEPRAZOL STADA [Concomitant]
     Active Substance: OMEPRAZOLE
  4. COMBAIR [IPRATROPIUM BROMIDE;SALBUTAMOL SULFATE] [Concomitant]
  5. PRALUENT [Suspect]
     Active Substance: ALIROCUMAB
     Indication: HYPERCHOLESTEROLAEMIA
  6. GODASAL [Concomitant]
     Active Substance: ASPIRIN\GLYCINE
  7. EVINACUMAB. [Suspect]
     Active Substance: EVINACUMAB
     Indication: HYPERCHOLESTEROLAEMIA
     Dosage: 15 MG/KG, QW
     Route: 042
     Dates: start: 20190121
  8. BETALOC ZOK [Concomitant]
     Active Substance: METOPROLOL SUCCINATE
  9. NITROGLYCERIN. [Concomitant]
     Active Substance: NITROGLYCERIN

REACTIONS (1)
  - Cataract [Recovered/Resolved]

NARRATIVE: CASE EVENT DATE: 20190311
